FAERS Safety Report 9802837 (Version 3)
Quarter: 2014Q1

REPORT INFORMATION
  Report Type: Spontaneous
  Country: IT (occurrence: None)
  Receive Date: 20140102
  Receipt Date: 20140218
  Transmission Date: 20141002
  Serious: Yes (Other)
  Sender: FDA-Public Use
  Company Number: AUR-APL-2013-10887

PATIENT
  Age: 50 Year
  Sex: Female

DRUGS (5)
  1. LEVOFLOXACIN [Suspect]
     Indication: PULMONARY TUBERCULOSIS
     Route: 048
  2. ISONIAZID (ISONIAZID) [Concomitant]
  3. PYRAZINAMIDE [Concomitant]
  4. RIFAMPIN [Concomitant]
  5. ETHAMBUTOL [Concomitant]

REACTIONS (3)
  - Pulmonary tuberculosis [None]
  - Drug resistance [None]
  - Polyneuropathy [None]
